FAERS Safety Report 9839173 (Version 1)
Quarter: 2014Q1

REPORT INFORMATION
  Report Type: Spontaneous
  Country: HU (occurrence: None)
  Receive Date: 20140116
  Receipt Date: 20140116
  Transmission Date: 20141002
  Serious: Yes (Other)
  Sender: FDA-Public Use
  Company Number: 2014AP000182

PATIENT
  Sex: Female

DRUGS (7)
  1. ALENDRONIC ACID (ALENDRONIC ACID) [Suspect]
     Indication: OSTEOPOROSIS
     Dates: start: 20130505, end: 201310
  2. CALCICHEW D3 (LEKOVIT CA) [Suspect]
     Indication: OSTEOPOROSIS
     Dates: start: 20130505, end: 201310
  3. CAVINTON (VINPOCETINE) [Concomitant]
  4. PERINDOPRIL W/INDAPAMIDE (INDAPAMIDE W/PERIDOPRIL) [Concomitant]
  5. ASTRIX (ACETYLSALICYLIC ACID) [Concomitant]
  6. RIVOTRIL (CLONAZEPAM) [Concomitant]
  7. CARVEDILOL (CARVEDILOL) [Concomitant]

REACTIONS (4)
  - Hypersensitivity [None]
  - Tremor [None]
  - Somnolence [None]
  - Insomnia [None]
